FAERS Safety Report 19545641 (Version 2)
Quarter: 2021Q3

REPORT INFORMATION
  Report Type: Spontaneous
  Country: DE (occurrence: DE)
  Receive Date: 20210714
  Receipt Date: 20210720
  Transmission Date: 20211014
  Serious: Yes (Other)
  Sender: FDA-Public Use
  Company Number: DE-TEVA-2021-DE-1931738

PATIENT
  Age: 74 Year
  Sex: Female

DRUGS (3)
  1. ATOSIL [Concomitant]
  2. OXAZEPAM?RATIOPHARM 10 MG TABLETTEN [Suspect]
     Active Substance: OXAZEPAM
     Indication: SLEEP DISORDER
     Dosage: FOR YEARS, CURRENTLY PROBABLY 4?10 TABLETS DURING THE DAY
     Route: 048
  3. DALMADORM [Concomitant]
     Active Substance: FLURAZEPAM HYDROCHLORIDE

REACTIONS (6)
  - Drug dependence [Unknown]
  - Mental impairment [Unknown]
  - Drug ineffective [Unknown]
  - Intentional product misuse [Unknown]
  - Somnolence [Unknown]
  - Confusional state [Unknown]
